FAERS Safety Report 10055021 (Version 2)
Quarter: 2014Q2

REPORT INFORMATION
  Report Type: Spontaneous
  Country: US (occurrence: US)
  Receive Date: 20140402
  Receipt Date: 20140404
  Transmission Date: 20141212
  Serious: No
  Sender: FDA-Public Use
  Company Number: US-009507513-1403USA013797

PATIENT
  Age: 39 Year
  Sex: Female

DRUGS (3)
  1. PROVENTIL [Suspect]
     Indication: BRONCHITIS
     Dosage: 2 PUFFS FOUR TIMES DAILY AS NEEDED
     Route: 055
     Dates: start: 20140313
  2. PROVENTIL [Suspect]
     Indication: ASTHMA
  3. ADVAIR [Concomitant]

REACTIONS (3)
  - Dyspnoea [Not Recovered/Not Resolved]
  - Drug dose omission [Unknown]
  - Product quality issue [Unknown]
